FAERS Safety Report 19674012 (Version 2)
Quarter: 2021Q3

REPORT INFORMATION
  Report Type: Spontaneous
  Country: US (occurrence: US)
  Receive Date: 20210809
  Receipt Date: 20210818
  Transmission Date: 20211014
  Serious: No
  Sender: FDA-Public Use
  Company Number: US-TEVA-2021-US-1937332

PATIENT
  Age: 39 Year
  Sex: Female

DRUGS (2)
  1. LAMOTRIGINE. [Concomitant]
     Active Substance: LAMOTRIGINE
  2. PORTIA [Suspect]
     Active Substance: ETHINYL ESTRADIOL\LEVONORGESTREL
     Route: 065
     Dates: start: 20210501, end: 20210701

REACTIONS (11)
  - Feeling abnormal [Unknown]
  - Illness [Unknown]
  - Panic reaction [Unknown]
  - Insomnia [Unknown]
  - Abdominal pain upper [Unknown]
  - Urticaria [Unknown]
  - Eczema [Unknown]
  - Abdominal discomfort [Unknown]
  - Migraine [Unknown]
  - Dysphagia [Unknown]
  - Diarrhoea [Unknown]

NARRATIVE: CASE EVENT DATE: 202105
